FAERS Safety Report 9847651 (Version 2)
Quarter: 2016Q2

REPORT INFORMATION
  Report Type: Report from Study
  Country: US (occurrence: US)
  Receive Date: 20140128
  Receipt Date: 20160513
  Transmission Date: 20160815
  Serious: Yes (Other)
  Sender: FDA-Public Use
  Company Number: US-ROCHE-1334438

PATIENT
  Age: 66 Year
  Sex: Female

DRUGS (7)
  1. UNIRETIC [Concomitant]
     Active Substance: HYDROCHLOROTHIAZIDE\MOEXIPRIL HYDROCHLORIDE
     Indication: BLOOD PRESSURE MEASUREMENT
  2. ASPIRIN. [Concomitant]
     Active Substance: ASPIRIN
  3. AVASTIN [Suspect]
     Active Substance: BEVACIZUMAB
     Indication: RETINAL HAEMORRHAGE
     Route: 050
     Dates: start: 2007, end: 201310
  4. LUCENTIS [Suspect]
     Active Substance: RANIBIZUMAB
     Indication: NEOVASCULAR AGE-RELATED MACULAR DEGENERATION
  5. LUCENTIS [Suspect]
     Active Substance: RANIBIZUMAB
     Indication: RETINAL HAEMORRHAGE
  6. AVASTIN [Suspect]
     Active Substance: BEVACIZUMAB
     Indication: RETINAL HAEMORRHAGE
  7. LUCENTIS [Suspect]
     Active Substance: RANIBIZUMAB
     Indication: RETINAL HAEMORRHAGE
     Route: 050
     Dates: start: 201310

REACTIONS (6)
  - Drug ineffective [Unknown]
  - Blindness [Unknown]
  - Visual acuity reduced [Unknown]
  - Off label use [Unknown]
  - Photophobia [Unknown]
  - Macular degeneration [Unknown]

NARRATIVE: CASE EVENT DATE: 200711
